FAERS Safety Report 10655793 (Version 2)
Quarter: 2014Q4

REPORT INFORMATION
  Report Type: Spontaneous
  Country: US (occurrence: US)
  Receive Date: 20141216
  Receipt Date: 20141216
  Transmission Date: 20150529
  Serious: Yes (Hospitalization, Other)
  Sender: FDA-Public Use
  Company Number: US-CELGENEUS-163-20785-14054412

PATIENT
  Age: 89 Year
  Sex: Female
  Weight: 59.4 kg

DRUGS (7)
  1. THALOMID [Suspect]
     Active Substance: THALIDOMIDE
     Dosage: 325 MILLIGRAM
     Route: 048
     Dates: start: 200901
  2. ALLOPURINOL. [Concomitant]
     Active Substance: ALLOPURINOL
     Indication: BLOOD PRESSURE
     Route: 048
     Dates: start: 20140305
  3. IBUPROFEN. [Concomitant]
     Active Substance: IBUPROFEN
     Indication: ARTHRALGIA
  4. THALOMID [Suspect]
     Active Substance: THALIDOMIDE
     Indication: PLASMA CELL MYELOMA
     Route: 048
     Dates: start: 200812
  5. IBUPROFEN. [Concomitant]
     Active Substance: IBUPROFEN
     Indication: PAIN
     Route: 048
     Dates: start: 20140305
  6. CHOLECALCIFEROL [Concomitant]
     Active Substance: CHOLECALCIFEROL
     Indication: PRODUCT USED FOR UNKNOWN INDICATION
     Route: 048
     Dates: start: 20140305
  7. CALCIUM + VITAMIN D [Concomitant]
     Active Substance: CALCIUM\VITAMIN D
     Indication: PRODUCT USED FOR UNKNOWN INDICATION
     Dosage: 500-200MG
     Route: 048

REACTIONS (5)
  - Osteoarthritis [Unknown]
  - Chronic kidney disease [Unknown]
  - Asthenia [Recovered/Resolved]
  - Urinary tract infection [Unknown]
  - Cerebrovascular accident [Recovered/Resolved]

NARRATIVE: CASE EVENT DATE: 20140506
